FAERS Safety Report 6977145-5 (Version None)
Quarter: 2010Q3

REPORT INFORMATION
  Report Type: 
  Country: None (occurrence: None)
  Receive Date: 20100910
  Receipt Date: 20100830
  Transmission Date: 20110219
  Serious: Yes (Hospitalization)
  Sender: FDA-Public Use
  Company Number: US-WATSON-2010-11785

PATIENT
  Age: 46 Year
  Sex: Male

DRUGS (2)
  1. OXYCODONE HCL [Suspect]
     Indication: POISONING
     Dosage: 350 MG, SINGLE
     Route: 048
  2. OXYCONTIN [Suspect]
     Indication: POISONING
     Dosage: 400 MG, SINGLE
     Route: 048

REACTIONS (4)
  - ATAXIA [None]
  - DYSARTHRIA [None]
  - LEUKOENCEPHALOPATHY [None]
  - POISONING [None]
